FAERS Safety Report 17156301 (Version 3)
Quarter: 2024Q3

REPORT INFORMATION
  Report Type: Spontaneous
  Country: US (occurrence: US)
  Receive Date: 20191216
  Receipt Date: 20240703
  Transmission Date: 20241016
  Serious: No
  Sender: GLAXOSMITHKLINE
  Company Number: US-GSKCCFUS-CASE-00515569_AE-29972

PATIENT
  Sex: Female

DRUGS (2)
  1. ARNUITY ELLIPTA [Suspect]
     Active Substance: FLUTICASONE FUROATE
     Indication: Product used for unknown indication
     Dosage: 1 PUFF(S), 1D
     Route: 055
     Dates: start: 2016
  2. ARNUITY ELLIPTA [Suspect]
     Active Substance: FLUTICASONE FUROATE
     Indication: Bronchiectasis
     Dosage: UNK

REACTIONS (7)
  - Tooth discolouration [Recovering/Resolving]
  - Hypersensitivity [Unknown]
  - Rhinorrhoea [Unknown]
  - Fatigue [Unknown]
  - Extra dose administered [Unknown]
  - Product use in unapproved indication [Unknown]
  - Product complaint [Unknown]

NARRATIVE: CASE EVENT DATE: 20160101
